FAERS Safety Report 15301828 (Version 1)
Quarter: 2018Q3

REPORT INFORMATION
  Report Type: Spontaneous
  Country: US (occurrence: US)
  Receive Date: 20180821
  Receipt Date: 20180821
  Transmission Date: 20181010
  Serious: No
  Sender: FDA-Public Use
  Company Number: US-MANNKIND CORPORATION-2017MK000255

PATIENT
  Age: 83 Year
  Sex: Male
  Weight: 88.53 kg

DRUGS (8)
  1. TOPROL XL [Concomitant]
     Active Substance: METOPROLOL SUCCINATE
     Indication: PRODUCT USED FOR UNKNOWN INDICATION
  2. FINASTERIDE. [Concomitant]
     Active Substance: FINASTERIDE
     Indication: PROSTATOMEGALY
     Route: 048
     Dates: start: 20171110, end: 20171120
  3. BABY ASPIRIN [Concomitant]
     Active Substance: ASPIRIN
     Indication: PRODUCT USED FOR UNKNOWN INDICATION
  4. AFREZZA [Suspect]
     Active Substance: INSULIN HUMAN
     Indication: DIABETES MELLITUS
     Dates: start: 201712
  5. AFREZZA [Suspect]
     Active Substance: INSULIN HUMAN
  6. AFREZZA [Suspect]
     Active Substance: INSULIN HUMAN
     Dates: start: 2015
  7. AFREZZA [Suspect]
     Active Substance: INSULIN HUMAN
  8. STATIN MEDICATION [Concomitant]
     Active Substance: UNSPECIFIED INGREDIENT
     Indication: PRODUCT USED FOR UNKNOWN INDICATION

REACTIONS (2)
  - Intentional product use issue [Recovered/Resolved with Sequelae]
  - Blood glucose increased [Recovering/Resolving]

NARRATIVE: CASE EVENT DATE: 201711
